FAERS Safety Report 10195730 (Version 3)
Quarter: 2014Q3

REPORT INFORMATION
  Report Type: Report from Study
  Country: AU (occurrence: AU)
  Receive Date: 20140527
  Receipt Date: 20140814
  Transmission Date: 20150326
  Serious: Yes (Death)
  Sender: FDA-Public Use
  Company Number: AU-BRISTOL-MYERS SQUIBB COMPANY-20787438

PATIENT
  Age: 82 Year
  Sex: Male

DRUGS (12)
  1. RESOURCE GLUTASOLVE [Concomitant]
  2. ONDANSETRON [Concomitant]
     Active Substance: ONDANSETRON
     Dosage: 4-5MG,16MG MAX
  3. HEPARIN SQ [Concomitant]
  4. IMDUR [Concomitant]
     Active Substance: ISOSORBIDE MONONITRATE
     Dosage: 1DF:60UNIT NOS
  5. MULTIVITAMIN [Concomitant]
     Active Substance: VITAMINS
     Dosage: 1TAB
  6. FOLATE [Concomitant]
     Active Substance: FOLATE SODIUM
  7. IPILIMUMAB [Suspect]
     Active Substance: IPILIMUMAB
     Indication: METASTATIC MALIGNANT MELANOMA
     Dates: start: 20140414
  8. ENDONE [Concomitant]
     Active Substance: OXYCODONE HYDROCHLORIDE
     Dosage: 2.5-5MG AS NECESSERY
  9. PANTOPRAZOLE [Concomitant]
     Active Substance: PANTOPRAZOLE SODIUM
  10. THIAMINE [Concomitant]
     Active Substance: THIAMINE
  11. METOCLOPRAMIDE. [Concomitant]
     Active Substance: METOCLOPRAMIDE
     Dates: start: 201403
  12. PARACETAMOL [Concomitant]
     Active Substance: ACETAMINOPHEN

REACTIONS (4)
  - Peritonitis [Fatal]
  - Abdominal sepsis [Fatal]
  - Colitis [Fatal]
  - Intestinal perforation [Fatal]

NARRATIVE: CASE EVENT DATE: 20140428
